FAERS Safety Report 4681588-2 (Version None)
Quarter: 2005Q2

REPORT INFORMATION
  Report Type: 
  Country: None (occurrence: None)
  Receive Date: 20050602
  Receipt Date: 20050526
  Transmission Date: 20051028
  Serious: Yes (Other)
  Sender: FDA-Public Use
  Company Number: 2005-05-1950

PATIENT
  Sex: Male

DRUGS (2)
  1. NASONEX [Suspect]
     Indication: NASAL CONGESTION
     Dosage: NASAL SPRAY
     Dates: start: 20050524
  2. NASONEX [Suspect]
     Indication: NASOPHARYNGITIS
     Dosage: NASAL SPRAY
     Dates: start: 20050524

REACTIONS (2)
  - AGEUSIA [None]
  - ANOSMIA [None]
